FAERS Safety Report 4289078-6 (Version None)
Quarter: 2004Q1

REPORT INFORMATION
  Report Type: 
  Country: None (occurrence: None)
  Receive Date: 20040130
  Receipt Date: 20031013
  Transmission Date: 20041129
  Serious: No
  Sender: FDA-Public Use
  Company Number: WAES 0310USA01552

PATIENT
  Age: 55 Year
  Sex: Female

DRUGS (4)
  1. EMEND [Suspect]
     Indication: PROPHYLAXIS OF NAUSEA AND VOMITING
     Dosage: 125 MG/1X  ;  80 MG/DAILY  :  PO
     Route: 048
     Dates: start: 20030101
  2. EMEND [Suspect]
     Indication: PROPHYLAXIS OF NAUSEA AND VOMITING
     Dosage: 125 MG/1X  ;  80 MG/DAILY  :  PO
     Route: 048
     Dates: start: 20030101
  3. ANTINEOPLASTIC (UNSPECIFIED) [Concomitant]
  4. DEXAMETHASONE [Concomitant]

REACTIONS (1)
  - TREMOR [None]
